FAERS Safety Report 6213935-4 (Version None)
Quarter: 2009Q2

REPORT INFORMATION
  Report Type: 
  Country: None (occurrence: None)
  Receive Date: 20090604
  Receipt Date: 20090603
  Transmission Date: 20091009
  Serious: Yes (Life-Threatening, Hospitalization, Other)
  Sender: FDA-Public Use
  Company Number: US-ASTRAZENECA-2009UW14063

PATIENT
  Age: 50 Year
  Sex: Female
  Weight: 46.3 kg

DRUGS (12)
  1. ATACAND [Suspect]
     Indication: HYPERTENSION
     Route: 048
     Dates: start: 20090313, end: 20090501
  2. AMLODIPINE [Concomitant]
  3. CLONAZEPAM [Concomitant]
  4. CLONIDINE [Concomitant]
     Dates: end: 20090501
  5. FERROUS SULFATE TAB [Concomitant]
  6. GABAPENTIN [Concomitant]
  7. INDAPAMIDE [Concomitant]
     Dates: end: 20090501
  8. OXYCODONE [Concomitant]
  9. PROCHLORPERAZINE [Concomitant]
  10. SERTRALINE HCL [Concomitant]
  11. SIMVASTATIN [Concomitant]
  12. TRAZODONE HCL [Concomitant]

REACTIONS (2)
  - HYPOTENSION [None]
  - RENAL FAILURE ACUTE [None]
